FAERS Safety Report 13649241 (Version 3)
Quarter: 2017Q3

REPORT INFORMATION
  Report Type: Spontaneous
  Country: IT (occurrence: IT)
  Receive Date: 20170613
  Receipt Date: 20170706
  Transmission Date: 20171127
  Serious: Yes (Other)
  Sender: FDA-Public Use
  Company Number: IT-ALLERGAN-1724060US

PATIENT
  Age: 40 Year
  Sex: Male
  Weight: 86 kg

DRUGS (3)
  1. PYLERA [Suspect]
     Active Substance: BISMUTH SUBCITRATE POTASSIUM\METRONIDAZOLE\TETRACYCLINE HYDROCHLORIDE
     Indication: HELICOBACTER INFECTION
     Dosage: 12 UNITS, QD
     Route: 048
     Dates: start: 20170601, end: 20170605
  2. PANTOPRAZOLE [Suspect]
     Active Substance: PANTOPRAZOLE
     Indication: OESOPHAGITIS
     Dosage: 2 UNITS, QD
     Route: 048
     Dates: start: 20170601, end: 20170605
  3. LYCOPODIUM CLAVATUM [Concomitant]
     Active Substance: HOMEOPATHICS
     Dosage: UNK

REACTIONS (10)
  - Vertigo [Recovering/Resolving]
  - Agitation [Recovering/Resolving]
  - Asthenia [Recovering/Resolving]
  - Constipation [Not Recovered/Not Resolved]
  - Presyncope [Recovering/Resolving]
  - Palpitations [Recovering/Resolving]
  - Poisoning [Recovering/Resolving]
  - Disturbance in attention [Recovering/Resolving]
  - Abdominal pain [Not Recovered/Not Resolved]
  - Liver disorder [Not Recovered/Not Resolved]

NARRATIVE: CASE EVENT DATE: 201706
